FAERS Safety Report 6173025-6 (Version None)
Quarter: 2009Q2

REPORT INFORMATION
  Report Type: 
  Country: None (occurrence: None)
  Receive Date: 20090428
  Receipt Date: 20090416
  Transmission Date: 20091009
  Serious: No
  Sender: FDA-Public Use
  Company Number: 006182

PATIENT
  Age: 79 Year
  Sex: Male

DRUGS (7)
  1. PLETAL [Suspect]
     Dosage: 50 MG, BID, ORAL
     Route: 048
     Dates: start: 20090220, end: 20090306
  2. BAYASPIRIN (ACETYLSALICYLIC ACID) ENTERIC TABLET [Concomitant]
  3. ALLOPURINOL [Concomitant]
  4. AMLODIPINE (AMLODIPINE BESILATE) TABLET [Concomitant]
  5. DOXAZOSIN MESYLATE [Concomitant]
  6. LIVALO (PITAVASTATIN CALCIUM) TABLET [Concomitant]
  7. KREMEZIN (SPHERICAL ABSORBENT COAL) [Concomitant]

REACTIONS (2)
  - CARDIAC FAILURE [None]
  - CARDIOMEGALY [None]
